FAERS Safety Report 23972816 (Version 1)
Quarter: 2024Q2

REPORT INFORMATION
  Report Type: Spontaneous
  Country: GB (occurrence: GB)
  Receive Date: 20240613
  Receipt Date: 20240613
  Transmission Date: 20240716
  Serious: Yes (Hospitalization, Other)
  Sender: FDA-Public Use
  Company Number: GB-INCYTE CORPORATION-2024IN004142

PATIENT

DRUGS (1)
  1. ICLUSIG [Suspect]
     Active Substance: PONATINIB\PONATINIB HYDROCHLORIDE
     Indication: Chronic myeloid leukaemia
     Dosage: 45 MILLIGRAM, QD
     Route: 048
     Dates: start: 201903, end: 202306

REACTIONS (8)
  - Confusional state [Recovering/Resolving]
  - Headache [Recovering/Resolving]
  - Iliac artery stenosis [Recovering/Resolving]
  - Peripheral artery occlusion [Recovering/Resolving]
  - Chronic myeloid leukaemia [Recovering/Resolving]
  - Diabetes mellitus [Unknown]
  - Pericardial effusion [Unknown]
  - Pleural effusion [Unknown]

NARRATIVE: CASE EVENT DATE: 20200601
